FAERS Safety Report 9326717 (Version 2)
Quarter: 2013Q3

REPORT INFORMATION
  Report Type: Spontaneous
  Country: US (occurrence: US)
  Receive Date: 20130604
  Receipt Date: 20130708
  Transmission Date: 20140515
  Serious: No
  Sender: FDA-Public Use
  Company Number: US-AMGEN-USASP2013035615

PATIENT
  Age: 69 Year
  Sex: Female
  Weight: 72.11 kg

DRUGS (1)
  1. ENBREL [Suspect]
     Indication: RHEUMATOID ARTHRITIS
     Dosage: 25 MG, 2 TIMES/WK
     Route: 065
     Dates: start: 201009

REACTIONS (3)
  - Cataract [Recovered/Resolved]
  - Spinal column stenosis [Not Recovered/Not Resolved]
  - Polyarthritis [Not Recovered/Not Resolved]
